FAERS Safety Report 5498870-1 (Version None)
Quarter: 2007Q4

REPORT INFORMATION
  Report Type: 
  Country: None (occurrence: None)
  Receive Date: 20071026
  Receipt Date: 20070730
  Transmission Date: 20080405
  Serious: No
  Sender: FDA-Public Use
  Company Number: A0666879A

PATIENT
  Age: 62 Year
  Sex: Female

DRUGS (8)
  1. ADVAIR DISKUS 100/50 [Suspect]
     Indication: ASTHMA
     Dosage: 1PUFF TWICE PER DAY
     Route: 055
     Dates: start: 20020701
  2. ASTELIN [Concomitant]
  3. NASACORT [Concomitant]
  4. CLARINEX [Concomitant]
  5. INHALER [Concomitant]
  6. NASAL SPRAY [Concomitant]
  7. DIABETES MEDICATION [Concomitant]
  8. UNKNOWN MEDICATION [Concomitant]
     Indication: HYPERTENSION

REACTIONS (2)
  - PHARMACEUTICAL PRODUCT COMPLAINT [None]
  - THROAT IRRITATION [None]
